FAERS Safety Report 10653865 (Version 4)
Quarter: 2015Q1

REPORT INFORMATION
  Report Type: Report from Study
  Country: JP (occurrence: JP)
  Receive Date: 20141216
  Receipt Date: 20150210
  Transmission Date: 20150720
  Serious: Yes (Hospitalization)
  Sender: FDA-Public Use
  Company Number: JP-ROCHE-1473529

PATIENT
  Age: 48 Year
  Sex: Female
  Weight: 61.1 kg

DRUGS (40)
  1. PERTUZUMAB [Suspect]
     Active Substance: PERTUZUMAB
     Dosage: MAINTENANCE DOSE?MOST RECENT DOSE: 26/SEP/2014, CYCLE 4 DAY 1
     Route: 042
     Dates: start: 20140926
  2. TRASTUZUMAB [Suspect]
     Active Substance: TRASTUZUMAB
     Indication: HER-2 POSITIVE BREAST CANCER
     Dosage: LOADING DOSE, CYCLE 1DAY1
     Route: 042
     Dates: start: 20140723, end: 20140926
  3. 5-FLUOROURACIL [Suspect]
     Active Substance: FLUOROURACIL
     Dosage: CYCLE 4DAY1
     Route: 065
     Dates: start: 20140702
  4. TRASTUZUMAB [Suspect]
     Active Substance: TRASTUZUMAB
     Dosage: MAINTENANCE DOSE?MOST RECENT DOSE:26/SEP/2014, CYCLE 3DAY1
     Route: 042
     Dates: start: 20140905
  5. DOCETAXEL. [Suspect]
     Active Substance: DOCETAXEL
     Dosage: MOST RECENT DOSE: 26/SEP/2014, CYCLE 3DAY1
     Route: 042
     Dates: start: 20140905
  6. FLUMETHOLON [Concomitant]
     Active Substance: FLUOROMETHOLONE
     Route: 047
     Dates: start: 20140822
  7. DECADRON [Concomitant]
     Active Substance: DEXAMETHASONE
     Indication: VOMITING
     Route: 065
     Dates: start: 20140906, end: 20140907
  8. PERTUZUMAB [Suspect]
     Active Substance: PERTUZUMAB
     Dosage: MAINTENANCE DOSE?MOST RECENT DOSE: 26/SEP/2014, CYCLE 2DAY1
     Route: 042
     Dates: start: 20140815
  9. CYCLOPHOSPHAMIDE. [Suspect]
     Active Substance: CYCLOPHOSPHAMIDE
     Indication: HER-2 POSITIVE BREAST CANCER
     Dosage: CYCLE 1 DAY1
     Route: 065
     Dates: start: 20140408
  10. CYCLOPHOSPHAMIDE. [Suspect]
     Active Substance: CYCLOPHOSPHAMIDE
     Dosage: CYCLE 3DAY1
     Route: 065
     Dates: start: 20140611
  11. VOALLA [Concomitant]
     Route: 065
     Dates: start: 20140926
  12. CYCLOPHOSPHAMIDE. [Suspect]
     Active Substance: CYCLOPHOSPHAMIDE
     Dosage: CYCLE 4DAY1
     Route: 065
     Dates: start: 20140702
  13. EPIRUBICIN [Suspect]
     Active Substance: EPIRUBICIN
     Indication: HER-2 POSITIVE BREAST CANCER
     Dosage: CYCLE 1DAY1
     Route: 065
     Dates: start: 20140408
  14. DOCETAXEL. [Suspect]
     Active Substance: DOCETAXEL
     Dosage: MOST RECENT DOSE: 26/SEP/2014, CYCLE 4DAY1
     Route: 042
     Dates: start: 20140926, end: 20140926
  15. VOGLIBOSE [Concomitant]
     Active Substance: VOGLIBOSE
     Route: 065
  16. INSULIN GLARGINE [Concomitant]
     Active Substance: INSULIN GLARGINE
     Route: 065
     Dates: start: 20140702
  17. NEO MEDROL EE [Concomitant]
     Route: 065
     Dates: start: 20140820
  18. TRASTUZUMAB [Suspect]
     Active Substance: TRASTUZUMAB
     Dosage: MAINTENANCE DOSE?MOST RECENT DOSE:26/SEP/2014, CYCLE 4DAY1
     Route: 042
     Dates: start: 20140926
  19. 5-FLUOROURACIL [Suspect]
     Active Substance: FLUOROURACIL
     Dosage: CYCLE 3DAY1
     Route: 065
     Dates: start: 20140611
  20. EPIRUBICIN [Suspect]
     Active Substance: EPIRUBICIN
     Dosage: CYCLE 4DAY1
     Route: 065
     Dates: start: 20140702
  21. ANTEBATE [Concomitant]
     Active Substance: BETAMETHASONE DIPROPIONATE
     Route: 065
     Dates: start: 20140902
  22. ALLELOCK [Concomitant]
     Active Substance: OLOPATADINE HYDROCHLORIDE
     Route: 065
     Dates: start: 20140926
  23. CYCLOPHOSPHAMIDE. [Suspect]
     Active Substance: CYCLOPHOSPHAMIDE
     Dosage: CYCLE 2DAY1
     Route: 065
     Dates: start: 20140430
  24. 5-FLUOROURACIL [Suspect]
     Active Substance: FLUOROURACIL
     Indication: HER-2 POSITIVE BREAST CANCER
     Dosage: CYCLE 1DAY1
     Route: 065
     Dates: start: 20140408
  25. EPIRUBICIN [Suspect]
     Active Substance: EPIRUBICIN
     Dosage: CYCLE 3DAY1
     Route: 065
     Dates: start: 20140611
  26. FAMOTIDINE. [Concomitant]
     Active Substance: FAMOTIDINE
     Route: 065
  27. CRAVIT [Concomitant]
     Active Substance: LEVOFLOXACIN
     Route: 047
     Dates: start: 20140822
  28. HIRUDOID OINTMENT [Concomitant]
     Route: 065
     Dates: start: 20140902
  29. PERTUZUMAB [Suspect]
     Active Substance: PERTUZUMAB
     Indication: HER-2 POSITIVE BREAST CANCER
     Dosage: LOADING DOSE, CYCLE 1DAY1
     Route: 042
     Dates: start: 20140723, end: 20140926
  30. PERTUZUMAB [Suspect]
     Active Substance: PERTUZUMAB
     Dosage: MAINTENANCE DOSE?MOST RECENT DOSE: 26/SEP/2014, CYCLE 3DAY1
     Route: 042
     Dates: start: 20140905
  31. TRASTUZUMAB [Suspect]
     Active Substance: TRASTUZUMAB
     Dosage: MAINTENANCE DOSE?MOST RECENT DOSE:26/SEP/2014, CYCLE 2DAY1
     Route: 042
     Dates: start: 20140815
  32. EPIRUBICIN [Suspect]
     Active Substance: EPIRUBICIN
     Dosage: CYCLE 2DAY1
     Route: 065
     Dates: start: 20140430
  33. DOCETAXEL. [Suspect]
     Active Substance: DOCETAXEL
     Indication: HER-2 POSITIVE BREAST CANCER
     Dosage: MOST RECENT DOSE: 26/SEP/2014, CYCLE 1DAY1
     Route: 042
     Dates: start: 20140723, end: 20140926
  34. DOCETAXEL. [Suspect]
     Active Substance: DOCETAXEL
     Dosage: MOST RECENT DOSE: 26/SEP/2014, CYCLE 2DAY1
     Route: 042
     Dates: start: 20140815
  35. JANUVIA [Concomitant]
     Active Substance: SITAGLIPTIN PHOSPHATE
     Route: 065
  36. LASIX [Concomitant]
     Active Substance: FUROSEMIDE
     Route: 065
     Dates: start: 20140906
  37. XYZAL [Concomitant]
     Active Substance: LEVOCETIRIZINE DIHYDROCHLORIDE
     Route: 065
     Dates: start: 20140926
  38. 5-FLUOROURACIL [Suspect]
     Active Substance: FLUOROURACIL
     Dosage: CYCLE 2DAY1
     Route: 065
     Dates: start: 20140430
  39. GLIMEPIRIDE. [Concomitant]
     Active Substance: GLIMEPIRIDE
     Dosage: SELECT IF ONGOING=YES
     Route: 065
  40. INSULIN HUMAN LISPRO [Concomitant]
     Route: 065
     Dates: start: 20140527

REACTIONS (1)
  - Bronchitis [Recovered/Resolved]

NARRATIVE: CASE EVENT DATE: 20141007
